FAERS Safety Report 7513860-2 (Version None)
Quarter: 2011Q2

REPORT INFORMATION
  Report Type: 
  Country: None (occurrence: None)
  Receive Date: 20110531
  Receipt Date: 20110519
  Transmission Date: 20111010
  Serious: Yes (Hospitalization, Disabling, Other)
  Sender: FDA-Public Use
  Company Number: PHEH2009US00889

PATIENT
  Sex: Female

DRUGS (43)
  1. ZOMETA [Suspect]
     Indication: NEOPLASM MALIGNANT
     Dosage: UNK
     Dates: start: 20020101, end: 20040101
  2. CHEMOTHERAPEUTICS NOS [Concomitant]
  3. DURAGESIC-100 [Concomitant]
  4. LEVAQUIN [Concomitant]
  5. LEXAPRO [Concomitant]
  6. VELCADE [Concomitant]
  7. PLAQUENIL [Concomitant]
  8. CALCIUM CARBONATE [Concomitant]
  9. REVLIMID [Concomitant]
  10. ETOPOSIDE [Concomitant]
  11. ZOMETA [Suspect]
     Indication: MULTIPLE MYELOMA
  12. FLUCONAZOLE [Concomitant]
  13. CHLORHEXIDINE GLUCONATE [Concomitant]
  14. OXYCODONE HCL AND ACETAMINOPHEN [Concomitant]
  15. LIDODERM [Concomitant]
  16. CEPHALEXIN [Concomitant]
     Dosage: 500 MG
  17. ZOLPIDEM [Concomitant]
  18. ZITHROMAX [Concomitant]
  19. ZYRTEC [Concomitant]
  20. CISPLATIN [Concomitant]
  21. BORTEZOMIB [Concomitant]
  22. AMPICILLIN SODIUM [Concomitant]
     Dosage: 500 MG
  23. ZITHROMAX [Concomitant]
     Dosage: UNK
  24. PLASMAPHERESIS BLOOD-PACK SYSTEM INFUSION [Concomitant]
  25. SULFAMETHOXAZOLE AND TRIMETHOPRIM DOUBLE STRENGTH [Concomitant]
  26. CYCLOPHOSPHAMIDE [Concomitant]
  27. LENALIDOMIDE [Concomitant]
  28. FEOGEN FA [Concomitant]
     Dosage: UNK
  29. THALIDOMIDE [Concomitant]
  30. NEXIUM [Concomitant]
  31. GABAPENTIN [Concomitant]
  32. AMOXICILLIN AND CLAVULANATE POTASSIUM [Concomitant]
  33. VALTREX [Concomitant]
  34. EFFEXOR XR [Concomitant]
     Dosage: 75 MG
  35. HYDROCODONE BITARTRATE AND ACETAMINOPHEN [Concomitant]
     Dosage: UNK
  36. DEXAMETHASONE [Concomitant]
  37. AMBIEN [Concomitant]
  38. PREDNISONE [Concomitant]
  39. ACYCLOVIR [Concomitant]
  40. PENICILLIN VK [Concomitant]
  41. TEQUIN [Concomitant]
  42. LIDOCAINE [Concomitant]
  43. NAPROXEN [Concomitant]
     Dosage: 500 MG

REACTIONS (53)
  - ARTHRALGIA [None]
  - DEPRESSION [None]
  - MUCOSAL INFLAMMATION [None]
  - PROTEIN URINE PRESENT [None]
  - AORTIC VALVE INCOMPETENCE [None]
  - PRIMARY SEQUESTRUM [None]
  - PNEUMONIA [None]
  - DYSPNOEA [None]
  - LUNG INFILTRATION [None]
  - OSTEOMYELITIS [None]
  - SPINAL OSTEOARTHRITIS [None]
  - PAIN IN EXTREMITY [None]
  - ATELECTASIS [None]
  - PULMONARY GRANULOMA [None]
  - DYSPHAGIA [None]
  - DISCOMFORT [None]
  - INJURY [None]
  - HYPOXIA [None]
  - INFLAMMATION [None]
  - FOOT FRACTURE [None]
  - STAPHYLOCOCCAL BACTERAEMIA [None]
  - MENTAL DISORDER [None]
  - QUALITY OF LIFE DECREASED [None]
  - ENDOCARDITIS [None]
  - ACUTE SINUSITIS [None]
  - OTITIS MEDIA [None]
  - OSTEONECROSIS OF JAW [None]
  - PAIN [None]
  - INFECTION [None]
  - POST HERPETIC NEURALGIA [None]
  - HAEMORRHOIDS [None]
  - FALL [None]
  - NUCLEAR MAGNETIC RESONANCE IMAGING ABNORMAL [None]
  - LIGHT CHAIN ANALYSIS INCREASED [None]
  - PHYSICAL DISABILITY [None]
  - ANXIETY [None]
  - SWELLING [None]
  - BONE DISORDER [None]
  - DISEASE PROGRESSION [None]
  - NEUROPATHY PERIPHERAL [None]
  - ANHEDONIA [None]
  - URINARY TRACT INFECTION [None]
  - DIVERTICULUM INTESTINAL [None]
  - PARAESTHESIA [None]
  - PULMONARY FIBROSIS [None]
  - HYPERMETABOLISM [None]
  - SCAR [None]
  - EMOTIONAL DISTRESS [None]
  - HODGKIN'S DISEASE [None]
  - UPPER RESPIRATORY TRACT INFECTION [None]
  - POOR VENOUS ACCESS [None]
  - HERPES ZOSTER [None]
  - INFLUENZA LIKE ILLNESS [None]
